FAERS Safety Report 17216478 (Version 3)
Quarter: 2022Q2

REPORT INFORMATION
  Report Type: Spontaneous
  Country: FR (occurrence: FR)
  Receive Date: 20191230
  Receipt Date: 20220517
  Transmission Date: 20220721
  Serious: Yes (Life-Threatening, Hospitalization, Other)
  Sender: FDA-Public Use
  Company Number: FR-SA-2019SA149087

PATIENT
  Age: 67 Year
  Sex: Male
  Weight: 82 kg

DRUGS (5)
  1. ACETAMINOPHEN [Suspect]
     Active Substance: ACETAMINOPHEN
     Indication: Product used for unknown indication
     Dosage: UNK
     Route: 065
  2. PROPRANOLOL [Suspect]
     Active Substance: PROPRANOLOL HYDROCHLORIDE
     Indication: Migraine
     Dosage: 1 DOSAGE FORM
     Route: 065
  3. LEVOMEPROMAZINE HYDROCHLORIDE [Suspect]
     Active Substance: LEVOMEPROMAZINE HYDROCHLORIDE
     Indication: Product used for unknown indication
     Dosage: 50 MILLIGRAM
     Route: 065
  4. PRISTINAMYCIN [Suspect]
     Active Substance: PRISTINAMYCIN
     Indication: Sinusitis
     Dosage: 1 DOSAGE FORM, TWO TIMES A DAY
     Route: 065
     Dates: start: 20190427, end: 20190428
  5. PRISTINAMYCIN [Suspect]
     Active Substance: PRISTINAMYCIN
     Dosage: 500 MILLIGRAM, TWO TIMES A DAY
     Route: 065
     Dates: start: 20190427, end: 20190428

REACTIONS (19)
  - Respiratory depression [Unknown]
  - Vomiting [Unknown]
  - Haemorrhoidal haemorrhage [Recovering/Resolving]
  - Swelling face [Recovering/Resolving]
  - Hair growth abnormal [Recovering/Resolving]
  - Abdominal pain upper [Recovering/Resolving]
  - Burning sensation [Recovering/Resolving]
  - Photosensitivity reaction [Recovering/Resolving]
  - Haematochezia [Recovering/Resolving]
  - Dyspnoea [Recovering/Resolving]
  - Erythema [Recovering/Resolving]
  - Asphyxia [Recovering/Resolving]
  - Angioedema [Recovering/Resolving]
  - Cough [Recovering/Resolving]
  - Pharyngeal swelling [Recovering/Resolving]
  - Pruritus [Recovering/Resolving]
  - Nausea [Recovering/Resolving]
  - Malaise [Unknown]
  - Discomfort [Recovering/Resolving]

NARRATIVE: CASE EVENT DATE: 20190401
